FAERS Safety Report 5808649-6 (Version None)
Quarter: 2008Q3

REPORT INFORMATION
  Report Type: 
  Country: None (occurrence: None)
  Receive Date: 20080714
  Receipt Date: 20080709
  Transmission Date: 20090109
  Serious: Yes (Hospitalization)
  Sender: FDA-Public Use
  Company Number: FR-BRISTOL-MYERS SQUIBB COMPANY-14256564

PATIENT
  Age: 53 Year
  Sex: Male

DRUGS (3)
  1. AMIKLIN INJ [Suspect]
     Indication: LUNG DISORDER
     Route: 042
     Dates: start: 20071201, end: 20080101
  2. AUGMENTIN '125' [Suspect]
     Indication: LUNG DISORDER
     Route: 042
     Dates: start: 20071201, end: 20080101
  3. TAVANIC [Suspect]
     Indication: LUNG DISORDER
     Route: 042
     Dates: start: 20071201, end: 20080101

REACTIONS (3)
  - ABDOMINAL PAIN [None]
  - CHILLS [None]
  - CLOSTRIDIUM DIFFICILE COLITIS [None]
